FAERS Safety Report 11371385 (Version 1)
Quarter: 2015Q3

REPORT INFORMATION
  Report Type: Spontaneous
  Country: US (occurrence: US)
  Receive Date: 20150812
  Receipt Date: 20150812
  Transmission Date: 20151125
  Serious: No
  Sender: FDA-Public Use
  Company Number: US-BAYER-2015-399170

PATIENT
  Sex: Male

DRUGS (2)
  1. ALEVE [Suspect]
     Active Substance: NAPROXEN SODIUM
     Indication: PAIN
     Dosage: 4 DF, UNK
  2. ALEVE [Suspect]
     Active Substance: NAPROXEN SODIUM
     Indication: BACK DISORDER

REACTIONS (2)
  - Product use issue [Unknown]
  - Drug ineffective [Unknown]
